FAERS Safety Report 11804981 (Version 1)
Quarter: 2015Q4

REPORT INFORMATION
  Report Type: Spontaneous
  Country: US (occurrence: US)
  Receive Date: 20151205
  Receipt Date: 20151205
  Transmission Date: 20160305
  Serious: No
  Sender: FDA-Public Use
  Company Number: US-BAUSCH-BL-2014-010954

PATIENT
  Sex: Female

DRUGS (6)
  1. XENAZINE [Suspect]
     Active Substance: TETRABENAZINE
     Indication: HUNTINGTON^S DISEASE
     Route: 048
     Dates: start: 20140818
  2. LORAZEPAM. [Concomitant]
     Active Substance: LORAZEPAM
     Indication: ANXIETY
  3. XENAZINE [Suspect]
     Active Substance: TETRABENAZINE
     Dosage: ONCE IN THE EVENING
     Route: 048
     Dates: start: 20141208
  4. XENAZINE [Suspect]
     Active Substance: TETRABENAZINE
     Dosage: ONCE IN THE MORNING
     Route: 048
     Dates: start: 20141208
  5. XENAZINE [Suspect]
     Active Substance: TETRABENAZINE
     Route: 048
  6. XENAZINE [Suspect]
     Active Substance: TETRABENAZINE
     Route: 048

REACTIONS (2)
  - Depressed level of consciousness [Recovered/Resolved]
  - Repetitive speech [Recovered/Resolved]
